FAERS Safety Report 5144748-2 (Version None)
Quarter: 2006Q4

REPORT INFORMATION
  Report Type: 
  Country: None (occurrence: None)
  Receive Date: 20061107
  Receipt Date: 19950207
  Transmission Date: 20070319
  Serious: Yes (Other)
  Sender: FDA-Public Use
  Company Number: F/94/01450/LAS

PATIENT
  Age: 56 Year
  Sex: Male
  Weight: 57 kg

DRUGS (4)
  1. LAMISIL [Suspect]
     Indication: NAIL TINEA
     Dosage: 250 MG, QD
     Route: 048
     Dates: start: 19940821, end: 19940823
  2. INSULIN NOVO [Concomitant]
     Indication: DIABETES MELLITUS INSULIN-DEPENDENT
     Dosage: 3 INJECTIONS DAILY
     Dates: start: 19760101
  3. GLUCOPHAGE [Concomitant]
  4. DIAMICRON [Concomitant]

REACTIONS (1)
  - HYPERGLYCAEMIA [None]
